FAERS Safety Report 7941225-8 (Version None)
Quarter: 2011Q4

REPORT INFORMATION
  Report Type: 
  Country: None (occurrence: None)
  Receive Date: 20111122
  Receipt Date: 20111122
  Transmission Date: 20120403
  Serious: Yes (Hospitalization)
  Sender: FDA-Public Use
  Company Number: None

PATIENT
  Sex: Female
  Weight: 54.5 kg

DRUGS (14)
  1. DOXORUBICIN HCL [Suspect]
     Indication: LEIOMYOSARCOMA
     Dosage: 30 MG Q WEEK X 2 PER CYCLE IV
     Route: 042
     Dates: start: 20111104
  2. DOXORUBICIN HCL [Suspect]
     Indication: LEIOMYOSARCOMA
     Dosage: 30 MG Q WEEK X 2 PER CYCLE IV
     Route: 042
     Dates: start: 20110923
  3. DOXORUBICIN HCL [Suspect]
     Indication: LEIOMYOSARCOMA
     Dosage: 30 MG Q WEEK X 2 PER CYCLE IV
     Route: 042
     Dates: start: 20111028
  4. COLACE [Concomitant]
  5. GEMCITABINE [Suspect]
     Indication: LEIOMYOSARCOMA
     Dosage: 600 MG Q WEEK X 2 PER CYCLE IV
     Route: 042
     Dates: start: 20111104
  6. GEMCITABINE [Suspect]
     Indication: LEIOMYOSARCOMA
     Dosage: 600 MG Q WEEK X 2 PER CYCLE IV
     Route: 042
     Dates: start: 20111028
  7. GEMCITABINE [Suspect]
     Indication: LEIOMYOSARCOMA
     Dosage: 600 MG Q WEEK X 2 PER CYCLE IV
     Route: 042
     Dates: start: 20110923
  8. TAXOTERE [Suspect]
     Indication: LEIOMYOSARCOMA
     Dosage: 30 MG Q WEEK X 2 PER CYCLE IV
     Route: 042
     Dates: start: 20111028
  9. TAXOTERE [Suspect]
     Indication: LEIOMYOSARCOMA
     Dosage: 30 MG Q WEEK X 2 PER CYCLE IV
     Route: 042
     Dates: start: 20110923
  10. TAXOTERE [Suspect]
     Indication: LEIOMYOSARCOMA
     Dosage: 30 MG Q WEEK X 2 PER CYCLE IV
     Route: 042
     Dates: start: 20111104
  11. COMPAZINE [Concomitant]
  12. IRON [Concomitant]
  13. MULTI-VITAMIN [Concomitant]
  14. ZOFRAN [Concomitant]

REACTIONS (1)
  - FEBRILE NEUTROPENIA [None]
